FAERS Safety Report 5657464-5 (Version None)
Quarter: 2008Q1

REPORT INFORMATION
  Report Type: 
  Country: None (occurrence: None)
  Receive Date: 20080310
  Receipt Date: 20080305
  Transmission Date: 20080703
  Serious: Yes (Other)
  Sender: FDA-Public Use
  Company Number: CZ-PFIZER INC-2008015522

PATIENT
  Sex: Female

DRUGS (2)
  1. SALAZOPYRIN [Suspect]
     Indication: ARTHRITIS REACTIVE
     Dosage: DAILY DOSE:2GRAM
     Route: 048
  2. MEDROL [Concomitant]

REACTIONS (2)
  - LABORATORY TEST ABNORMAL [None]
  - MENIERE'S DISEASE [None]
